FAERS Safety Report 4484037-2 (Version None)
Quarter: 2004Q4

REPORT INFORMATION
  Report Type: 
  Country: None (occurrence: None)
  Receive Date: 20041025
  Receipt Date: 20030605
  Transmission Date: 20050328
  Serious: Yes (Disabling, Other)
  Sender: FDA-Public Use
  Company Number: US-MERCK-0306USA00868

PATIENT
  Age: 48 Year
  Sex: Female

DRUGS (17)
  1. VIOXX [Suspect]
     Route: 048
  2. ZANTAC [Concomitant]
     Route: 065
  3. REGLAN [Concomitant]
     Route: 065
  4. DICYCLOMINE HYDROCHLORIDE [Concomitant]
     Route: 065
  5. PROCARDIA [Concomitant]
     Route: 065
  6. VICODIN ES [Concomitant]
     Route: 065
  7. VICODIN ES [Concomitant]
     Route: 065
  8. ARTHROTEC [Concomitant]
     Route: 065
  9. DITROPAN XL [Concomitant]
     Route: 065
  10. ADALAT [Concomitant]
     Route: 065
  11. QUININE [Concomitant]
     Route: 065
  12. CRIXIVAN [Concomitant]
     Route: 048
  13. CRIXIVAN [Concomitant]
     Route: 048
     Dates: start: 19990101
  14. COMBIVIR [Concomitant]
     Route: 065
     Dates: start: 19990101
  15. BACTRIM [Concomitant]
     Route: 065
  16. ALLEGRA [Concomitant]
     Route: 065
  17. DIFLUCAN [Concomitant]
     Route: 065

REACTIONS (21)
  - ADVERSE EVENT [None]
  - AMNESIA [None]
  - ANAEMIA [None]
  - BRONCHITIS [None]
  - CEREBROVASCULAR ACCIDENT [None]
  - CHEST PAIN [None]
  - DEPRESSION [None]
  - DIFFICULTY IN WALKING [None]
  - DISORIENTATION [None]
  - DYSARTHRIA [None]
  - DYSSTASIA [None]
  - FALL [None]
  - GASTROINTESTINAL HAEMORRHAGE [None]
  - HERPES SIMPLEX [None]
  - HYPERSENSITIVITY [None]
  - NEUROPATHY [None]
  - POLYURIA [None]
  - SUBCUTANEOUS ABSCESS [None]
  - SYNCOPE [None]
  - TONGUE DISORDER [None]
  - URINARY INCONTINENCE [None]
